FAERS Safety Report 7459298-8 (Version None)
Quarter: 2011Q2

REPORT INFORMATION
  Report Type: 
  Country: None (occurrence: None)
  Receive Date: 20110505
  Receipt Date: 20110426
  Transmission Date: 20111010
  Serious: Yes (Other)
  Sender: FDA-Public Use
  Company Number: US-PFIZER INC-2011090813

PATIENT
  Sex: Male

DRUGS (1)
  1. SERTRALINE HYDROCHLORIDE [Suspect]
     Indication: SEASONAL AFFECTIVE DISORDER
     Dosage: UNK

REACTIONS (2)
  - AGITATION [None]
  - DRUG DOSE OMISSION [None]
